FAERS Safety Report 9386754 (Version 1)
Quarter: 2013Q3

REPORT INFORMATION
  Report Type: Spontaneous
  Country: TR (occurrence: None)
  Receive Date: 20130702
  Receipt Date: 20130702
  Transmission Date: 20140515
  Serious: Yes (Hospitalization, Other)
  Sender: FDA-Public Use
  Company Number: 2013P10009938

PATIENT
  Age: 6 Year
  Sex: Male

DRUGS (1)
  1. VALPROIC ACID [Suspect]
     Indication: CONVULSION

REACTIONS (15)
  - Pancreatitis acute [None]
  - Haematemesis [None]
  - Splenomegaly [None]
  - Liver palpable subcostal [None]
  - Renal impairment [None]
  - Liver disorder [None]
  - Thrombocytopenia [None]
  - Coagulopathy [None]
  - Multi-organ failure [None]
  - Shock [None]
  - Sepsis [None]
  - Disseminated intravascular coagulation [None]
  - General physical health deterioration [None]
  - Prothrombin time prolonged [None]
  - Activated partial thromboplastin time prolonged [None]
